FAERS Safety Report 14690499 (Version 3)
Quarter: 2018Q2

REPORT INFORMATION
  Report Type: Report from Study
  Country: TW (occurrence: TW)
  Receive Date: 20180328
  Receipt Date: 20180430
  Transmission Date: 20180711
  Serious: Yes (Other)
  Sender: FDA-Public Use
  Company Number: TW-TAKEDA-2018TUS006897

PATIENT
  Age: 44 Year
  Sex: Male
  Weight: 63 kg

DRUGS (7)
  1. PONATINIB [Suspect]
     Active Substance: PONATINIB
     Dosage: 30 MG, UNK
     Route: 065
     Dates: start: 20170510, end: 20170606
  2. PONATINIB [Suspect]
     Active Substance: PONATINIB
     Dosage: 45 MG, UNK
     Route: 065
     Dates: start: 20170119, end: 20170219
  3. PONATINIB [Suspect]
     Active Substance: PONATINIB
     Dosage: 30 MG, UNK
     Route: 065
     Dates: start: 20170830, end: 20171010
  4. PONATINIB [Suspect]
     Active Substance: PONATINIB
     Dosage: 15 MG, UNK
     Route: 065
     Dates: start: 20171122, end: 20171219
  5. PONATINIB [Suspect]
     Active Substance: PONATINIB
     Dosage: 15 MG, UNK
     Route: 065
     Dates: start: 20180124, end: 20180315
  6. PONATINIB [Suspect]
     Active Substance: PONATINIB
     Indication: CHRONIC MYELOID LEUKAEMIA
     Dosage: 45 MG, UNK
     Route: 065
     Dates: start: 20161011, end: 20161108
  7. CELECOXIB. [Concomitant]
     Active Substance: CELECOXIB
     Indication: ERYTHEMA MULTIFORME
     Dosage: UNK
     Dates: start: 20180223, end: 20180315

REACTIONS (1)
  - Erythema multiforme [Recovered/Resolved]

NARRATIVE: CASE EVENT DATE: 20180314
